FAERS Safety Report 4685343-9 (Version None)
Quarter: 2005Q2

REPORT INFORMATION
  Report Type: 
  Country: None (occurrence: None)
  Receive Date: 20050608
  Receipt Date: 20041018
  Transmission Date: 20051028
  Serious: Yes (Life-Threatening, Hospitalization)
  Sender: FDA-Public Use
  Company Number: US-MERCK-0410USA02703

PATIENT
  Age: 73 Year
  Sex: Female
  Weight: 66 kg

DRUGS (9)
  1. VIOXX [Suspect]
     Indication: PAIN IN EXTREMITY
     Route: 048
     Dates: start: 20020222, end: 20040329
  2. VIOXX [Suspect]
     Indication: PAIN
     Route: 048
     Dates: start: 20020222, end: 20040329
  3. VIOXX [Suspect]
     Route: 048
     Dates: start: 20020222, end: 20040329
  4. VIOXX [Suspect]
     Route: 048
     Dates: start: 20020222, end: 20040329
  5. VASERETIC [Concomitant]
     Route: 048
     Dates: start: 20000224
  6. TYLENOL (CAPLET) [Concomitant]
     Route: 065
  7. ADVIL [Concomitant]
     Route: 065
  8. TOPROL-XL [Concomitant]
     Indication: HYPERTENSION
     Route: 065
     Dates: start: 20040101, end: 20040101
  9. METHADONE HYDROCHLORIDE [Concomitant]
     Indication: PAIN
     Route: 065

REACTIONS (24)
  - ACUTE MYOCARDIAL INFARCTION [None]
  - ANOREXIA [None]
  - ASTHENIA [None]
  - BLOOD GLUCOSE INCREASED [None]
  - CAROTID ARTERY STENOSIS [None]
  - CHEST X-RAY ABNORMAL [None]
  - CHILLS [None]
  - CONSTIPATION [None]
  - CORONARY ARTERY STENOSIS [None]
  - DIZZINESS [None]
  - EMOTIONAL DISTRESS [None]
  - HYPERHIDROSIS [None]
  - HYPERLIPIDAEMIA [None]
  - INFLAMMATION [None]
  - LEUKOCYTOSIS [None]
  - METABOLIC SYNDROME [None]
  - OEDEMA PERIPHERAL [None]
  - OSTEOARTHRITIS [None]
  - PAIN [None]
  - PYREXIA [None]
  - RENAL FAILURE [None]
  - RESPIRATORY DISTRESS [None]
  - SINUS TACHYCARDIA [None]
  - TACHYCARDIA [None]
